FAERS Safety Report 9704145 (Version 1)
Quarter: 2013Q4

REPORT INFORMATION
  Report Type: Spontaneous
  Country: US (occurrence: US)
  Receive Date: 20131122
  Receipt Date: 20131122
  Transmission Date: 20140711
  Serious: Yes (Death, Other)
  Sender: FDA-Public Use
  Company Number: US-B.I. PHARMACEUTICALS,INC./RIDGEFIELD-2013-BI-38161BP

PATIENT
  Age: 77 Year
  Sex: Female
  Weight: 82 kg

DRUGS (11)
  1. SPIRIVA [Suspect]
     Indication: CHRONIC OBSTRUCTIVE PULMONARY DISEASE
     Dosage: 18 MCG
     Route: 055
     Dates: start: 2008
  2. TRAMADOL [Concomitant]
     Indication: MYALGIA
     Dosage: 300 MG
     Route: 048
  3. PERCOCET [Concomitant]
     Indication: PAIN
     Dosage: STRENGTH: 7.5 MG/500 MG; DAILY DOSE: 22.5 MG/ 1500 MG
     Route: 048
  4. CELEBREX [Concomitant]
     Indication: ARTHRITIS
     Dosage: 200 MG
     Route: 048
  5. TEMAZEPAM [Concomitant]
     Indication: INSOMNIA
     Dosage: 30 MG
     Route: 048
  6. ADVAIR DISKUS [Concomitant]
     Indication: CHRONIC OBSTRUCTIVE PULMONARY DISEASE
     Dosage: STRENGTH: 250/50 MCG; DAILY DOSE: 500/100 MCG
     Route: 055
  7. VALIUM [Concomitant]
     Indication: ANXIETY
     Dosage: 20 MG
     Route: 048
  8. ALBUTEROL SULFATE [Concomitant]
     Indication: CHRONIC OBSTRUCTIVE PULMONARY DISEASE
     Dosage: 15 MG
     Route: 055
  9. MELOXICAM [Concomitant]
     Indication: PAIN
     Dosage: 10 MG
     Route: 048
  10. LISINOPRIL [Concomitant]
     Indication: CARDIAC FAILURE CONGESTIVE
     Route: 048
  11. NEURONTIN [Concomitant]
     Indication: NEUROPATHY PERIPHERAL
     Dosage: 900 MG
     Route: 048

REACTIONS (2)
  - Death [Fatal]
  - Respiratory failure [Unknown]
